FAERS Safety Report 5587092-1 (Version None)
Quarter: 2008Q1

REPORT INFORMATION
  Report Type: 
  Country: None (occurrence: None)
  Receive Date: 20080110
  Receipt Date: 20080103
  Transmission Date: 20080703
  Serious: Yes (Other)
  Sender: FDA-Public Use
  Company Number: B0435696A

PATIENT
  Age: 49 Year
  Sex: Female

DRUGS (2)
  1. SEROXAT [Suspect]
     Indication: PANIC ATTACK
     Route: 065
     Dates: start: 19970320
  2. DIAZEPAM [Concomitant]
     Indication: PHOBIA OF FLYING
     Dates: start: 19810731

REACTIONS (27)
  - ABNORMAL DREAMS [None]
  - AGORAPHOBIA [None]
  - AMNESIA [None]
  - ANOREXIA [None]
  - ANXIETY [None]
  - ASTHENIA [None]
  - BALANCE DISORDER [None]
  - CONDITION AGGRAVATED [None]
  - CRYING [None]
  - DEPRESSED MOOD [None]
  - DEPRESSION [None]
  - DISORIENTATION [None]
  - DISTURBANCE IN ATTENTION [None]
  - EAR DISCOMFORT [None]
  - FEAR [None]
  - HYPERACUSIS [None]
  - INFLUENZA LIKE ILLNESS [None]
  - MALAISE [None]
  - MOOD SWINGS [None]
  - PANIC ATTACK [None]
  - PARAESTHESIA [None]
  - QUALITY OF LIFE DECREASED [None]
  - SUICIDAL IDEATION [None]
  - TINNITUS [None]
  - VISUAL DISTURBANCE [None]
  - WEIGHT DECREASED [None]
  - WITHDRAWAL SYNDROME [None]
